FAERS Safety Report 9768871 (Version 1)
Quarter: 2013Q4

REPORT INFORMATION
  Report Type: Spontaneous
  Country: GB (occurrence: None)
  Receive Date: 20131212
  Receipt Date: 20131212
  Transmission Date: 20140711
  Serious: Yes (Hospitalization)
  Sender: FDA-Public Use
  Company Number: 224812

PATIENT
  Age: 87 Year
  Sex: Female
  Weight: 55 kg

DRUGS (9)
  1. DAIVONEX [Suspect]
     Indication: PSORIASIS
     Dosage: 1DF
     Dates: start: 20131115, end: 20131118
  2. AMISULPRIDE (AMISULPRIDE) [Concomitant]
  3. ASPIRIN (ACETYLSALICYLIC ACID) [Concomitant]
  4. CANESTEN HC (CANESTEN-HC) [Concomitant]
  5. CO-CODAMOL (PANADEINE CO) [Concomitant]
  6. ISOSORBIDE MONOITRATE (ISOSORBIDE MONONITRATE) [Concomitant]
  7. METOPROLOL [Concomitant]
  8. OMEPRAZOLE [Concomitant]
  9. SIMVASTATIN [Concomitant]

REACTIONS (4)
  - Cellulitis [None]
  - Psoriasis [None]
  - Pruritus [None]
  - Vasculitis [None]
